FAERS Safety Report 14407572 (Version 1)
Quarter: 2018Q1

REPORT INFORMATION
  Report Type: Spontaneous
  Country: CN (occurrence: CN)
  Receive Date: 20180118
  Receipt Date: 20180118
  Transmission Date: 20180509
  Serious: Yes (Death)
  Sender: FDA-Public Use
  Company Number: CN-PFIZER INC-2018022852

PATIENT
  Age: 61 Year
  Sex: Male

DRUGS (3)
  1. TYGACIL [Suspect]
     Active Substance: TIGECYCLINE
     Indication: ABDOMINAL INFECTION
     Dosage: 100 MG, 2X/DAY
     Route: 042
     Dates: end: 20180105
  2. DIFLUCAN [Concomitant]
     Active Substance: FLUCONAZOLE
     Dosage: 0.4 G, 1X/DAY
     Route: 048
     Dates: start: 201712, end: 20180105
  3. SULPERAZON [Suspect]
     Active Substance: CEFOPERAZONE SODIUM\SULBACTAM SODIUM
     Indication: ABDOMINAL INFECTION
     Dosage: 3 G, 4X/DAY
     Route: 042
     Dates: end: 20180105

REACTIONS (1)
  - Gastrointestinal haemorrhage [Fatal]

NARRATIVE: CASE EVENT DATE: 20170105
